FAERS Safety Report 8028516-X (Version None)
Quarter: 2012Q1

REPORT INFORMATION
  Report Type: 
  Country: None (occurrence: None)
  Receive Date: 20120104
  Receipt Date: 20111223
  Transmission Date: 20120608
  Serious: Yes (Hospitalization)
  Sender: FDA-Public Use
  Company Number: 2009SP027792

PATIENT
  Age: 45 Year
  Sex: Female
  Weight: 56.1 kg

DRUGS (1)
  1. TEMODAL [Suspect]
     Indication: ANAPLASTIC ASTROCYTOMA
     Dosage: 140 MG; QD; PO
     Route: 048
     Dates: start: 20081005, end: 20081117

REACTIONS (3)
  - PANCYTOPENIA [None]
  - UTERINE HAEMORRHAGE [None]
  - HEPATITIS [None]
